FAERS Safety Report 16768324 (Version 2)
Quarter: 2019Q3

REPORT INFORMATION
  Report Type: Spontaneous
  Country: FR (occurrence: FR)
  Receive Date: 20190903
  Receipt Date: 20190911
  Transmission Date: 20191005
  Serious: Yes (Death, Life-Threatening)
  Sender: FDA-Public Use
  Company Number: FR-MYLANLABS-2019M1081858

PATIENT
  Age: 59 Year
  Sex: Male
  Weight: 54.7 kg

DRUGS (1)
  1. ENTECAVIR MYLAN [Suspect]
     Active Substance: ENTECAVIR
     Indication: HEPATITIS B
     Dosage: 0.5 MILLIGRAM, QD
     Route: 048
     Dates: start: 201901, end: 20190306

REACTIONS (2)
  - Incorrect dosage administered [Recovered/Resolved]
  - Lactic acidosis [Fatal]

NARRATIVE: CASE EVENT DATE: 20190228
